FAERS Safety Report 8814673 (Version 2)
Quarter: 2012Q4

REPORT INFORMATION
  Report Type: Report from Study
  Country: US (occurrence: US)
  Receive Date: 20120928
  Receipt Date: 20121005
  Transmission Date: 20130627
  Serious: Yes (Other)
  Sender: FDA-Public Use
  Company Number: US-US-EMD SERONO, INC.-7162823

PATIENT
  Sex: Female
  Weight: 13 kg

DRUGS (2)
  1. SAIZEN [(SOMATROPIN (RDNA ORIGIN) FOR INJECTION)] [Suspect]
     Indication: TURNER^S SYNDROME
     Dates: start: 20110325, end: 201207
  2. SAIZEN [(SOMATROPIN (RDNA ORIGIN) FOR INJECTION)] [Suspect]

REACTIONS (2)
  - Otitis media acute [Recovered/Resolved]
  - Tonsillectomy [Recovered/Resolved]
